FAERS Safety Report 4568379-8 (Version None)
Quarter: 2005Q1

REPORT INFORMATION
  Report Type: 
  Country: None (occurrence: None)
  Receive Date: 20050131
  Receipt Date: 20050113
  Transmission Date: 20050727
  Serious: Yes (Life-Threatening)
  Sender: FDA-Public Use
  Company Number: 430002L04DEU

PATIENT
  Age: 45 Year
  Sex: Female

DRUGS (7)
  1. MITOXANTRONE [Suspect]
     Indication: MULTIPLE SCLEROSIS
     Dosage: 12 MG/M2, ONCE, INTRAVENOUS, NOT OTHERWISE SPECIFIED)
     Route: 042
     Dates: start: 19990127, end: 19990127
  2. MITOXANTRONE [Suspect]
     Indication: MULTIPLE SCLEROSIS
     Dosage: 12 MG/M2, ONCE, INTRAVENOUS, NOT OTHERWISE SPECIFIED)
     Route: 042
     Dates: start: 19990516, end: 19990516
  3. MITOXANTRONE [Suspect]
     Indication: MULTIPLE SCLEROSIS
     Dosage: 12 MG/M2, ONCE, INTRAVENOUS, NOT OTHERWISE SPECIFIED)
     Route: 042
     Dates: start: 19990921, end: 19990921
  4. MITOXANTRONE [Suspect]
     Indication: MULTIPLE SCLEROSIS
     Dosage: 12 MG/M2, ONCE, INTRAVENOUS, NOT OTHERWISE SPECIFIED)
     Route: 042
     Dates: start: 20000121, end: 20000121
  5. TROSPIUM CHLORIDE [Concomitant]
  6. METHIONINE [Concomitant]
  7. IODINE [Concomitant]

REACTIONS (10)
  - ACUTE LEUKAEMIA [None]
  - ACUTE MYELOID LEUKAEMIA [None]
  - CHROMOSOME ABNORMALITY [None]
  - CSF TEST ABNORMAL [None]
  - FATIGUE [None]
  - INFECTION [None]
  - NIGHT SWEATS [None]
  - PYREXIA [None]
  - STEM CELL TRANSPLANT [None]
  - TRISOMY 11 [None]
